FAERS Safety Report 7412671-6 (Version None)
Quarter: 2011Q2

REPORT INFORMATION
  Report Type: 
  Country: None (occurrence: None)
  Receive Date: 20110413
  Receipt Date: 20110404
  Transmission Date: 20111010
  Serious: Yes (Other)
  Sender: FDA-Public Use
  Company Number: US-ASTRAZENECA-2010SE14609

PATIENT
  Age: 437 Month
  Sex: Female

DRUGS (1)
  1. NEXIUM [Suspect]
     Indication: IMPAIRED GASTRIC EMPTYING
     Route: 048

REACTIONS (4)
  - TIBIA FRACTURE [None]
  - IMPAIRED WORK ABILITY [None]
  - PAIN [None]
  - ROAD TRAFFIC ACCIDENT [None]
